APPROVED DRUG PRODUCT: ANZEMET
Active Ingredient: DOLASETRON MESYLATE
Strength: 12.5MG/0.625ML (20MG/ML)
Dosage Form/Route: INJECTABLE;INJECTION
Application: N020624 | Product #002
Applicant: VALIDUS PHARMACEUTICALS LLC
Approved: Sep 11, 1997 | RLD: Yes | RS: No | Type: DISCN